FAERS Safety Report 8305063-9 (Version None)
Quarter: 2012Q2

REPORT INFORMATION
  Report Type: 
  Country: None (occurrence: None)
  Receive Date: 20120404
  Receipt Date: 20120319
  Transmission Date: 20120825
  Serious: Yes (Other)
  Sender: FDA-Public Use
  Company Number: 2012PROUSA01058

PATIENT
  Sex: Male

DRUGS (3)
  1. METHOTREXATE [Suspect]
     Indication: RHEUMATOID ARTHRITIS
     Dosage: 7.5 MG, WEEKLY
     Dates: end: 20120101
  2. PREDNISONE [Suspect]
     Indication: RHEUMATOID ARTHRITIS
     Dosage: 6 MG, WEEKLY
     Dates: end: 20120101
  3. PROVENGE [Suspect]
     Indication: PROSTATE CANCER METASTATIC
     Dosage: 250 ML, SINGLE; 250 ML, SINGLE, INTRAVENOUS, 250 ML, SINGLE, INTRAVENOUS

REACTIONS (11)
  - IMMUNE SYSTEM DISORDER [None]
  - BLOOD LACTATE DEHYDROGENASE INCREASED [None]
  - BACK PAIN [None]
  - LYMPHOCYTE COUNT DECREASED [None]
  - PLATELET COUNT DECREASED [None]
  - COLD AGGLUTININS POSITIVE [None]
  - BLOOD ALKALINE PHOSPHATASE INCREASED [None]
  - ANAEMIA [None]
  - PROSTATIC SPECIFIC ANTIGEN INCREASED [None]
  - NEUTROPENIA [None]
  - FATIGUE [None]
